FAERS Safety Report 6498179-3 (Version None)
Quarter: 2009Q4

REPORT INFORMATION
  Report Type: 
  Country: None (occurrence: None)
  Receive Date: 20091215
  Receipt Date: 20091203
  Transmission Date: 20100525
  Serious: Yes (Other)
  Sender: FDA-Public Use
  Company Number: US-ELI_LILLY_AND_COMPANY-US200912001520

PATIENT
  Sex: Male

DRUGS (2)
  1. CYMBALTA [Suspect]
     Dosage: 20 MG, 2/D
     Dates: start: 20090821, end: 20091021
  2. SIMVASTATIN [Concomitant]
     Dosage: 20 MG, DAILY (1/D)

REACTIONS (5)
  - ALANINE AMINOTRANSFERASE INCREASED [None]
  - ASPARTATE AMINOTRANSFERASE INCREASED [None]
  - BLOOD ALKALINE PHOSPHATASE INCREASED [None]
  - JAUNDICE [None]
  - LIPASE INCREASED [None]
